APPROVED DRUG PRODUCT: ZMAX
Active Ingredient: AZITHROMYCIN
Strength: EQ 2GM BASE/BOT
Dosage Form/Route: FOR SUSPENSION, EXTENDED RELEASE;ORAL
Application: N050797 | Product #001
Applicant: PF PRISM CV
Approved: Jun 10, 2005 | RLD: Yes | RS: No | Type: DISCN